FAERS Safety Report 20306660 (Version 2)
Quarter: 2022Q1

REPORT INFORMATION
  Report Type: Spontaneous
  Country: US (occurrence: US)
  Receive Date: 20220106
  Receipt Date: 20220121
  Transmission Date: 20220423
  Serious: Yes (Life-Threatening, Hospitalization)
  Sender: FDA-Public Use
  Company Number: US-TEVA-2021-US-1995675

PATIENT
  Age: 33 Year
  Sex: Female

DRUGS (3)
  1. NUVIGIL [Suspect]
     Active Substance: ARMODAFINIL
     Indication: Sleep disorder
     Route: 065
  2. NUVIGIL [Suspect]
     Active Substance: ARMODAFINIL
     Route: 048
  3. BLEOMYCIN [Suspect]
     Active Substance: BLEOMYCIN SULFATE
     Indication: Hodgkin^s disease
     Route: 065

REACTIONS (6)
  - Erythema multiforme [Recovered/Resolved]
  - Respiratory distress [Recovered/Resolved]
  - Stevens-Johnson syndrome [Recovering/Resolving]
  - Urine output decreased [Recovering/Resolving]
  - Respiratory failure [Recovering/Resolving]
  - Accidental exposure to product [Recovering/Resolving]
